FAERS Safety Report 8623368-9 (Version None)
Quarter: 2012Q3

REPORT INFORMATION
  Report Type: 
  Country: None (occurrence: None)
  Receive Date: 20120827
  Receipt Date: 20120820
  Transmission Date: 20120928
  Serious: Yes (Other)
  Sender: FDA-Public Use
  Company Number: GB-JNJFOC-20111004373

PATIENT
  Sex: Female

DRUGS (3)
  1. PENTASA [Suspect]
     Indication: PRODUCT USED FOR UNKNOWN INDICATION
     Route: 065
     Dates: start: 20080101
  2. REMICADE [Suspect]
     Indication: CROHN'S DISEASE
     Dosage: DOSE: 7.5MG/KG
     Route: 042
     Dates: start: 20080101
  3. PREDNISOLONE [Suspect]
     Indication: CROHN'S DISEASE
     Dosage: 30-40 MG
     Route: 065
     Dates: start: 20080101

REACTIONS (2)
  - MATERNAL EXPOSURE DURING PREGNANCY [None]
  - PREMATURE LABOUR [None]
